FAERS Safety Report 5531874-9 (Version None)
Quarter: 2007Q4

REPORT INFORMATION
  Report Type: 
  Country: None (occurrence: None)
  Receive Date: 20071119
  Receipt Date: 20070731
  Transmission Date: 20080405
  Serious: No
  Sender: FDA-Public Use
  Company Number: TPA2007A01629

PATIENT
  Age: 7 Decade
  Sex: Female

DRUGS (3)
  1. ROZEREM [Suspect]
     Indication: INSOMNIA
     Dosage: 8 MG, QHS, PER ORAL
     Route: 048
     Dates: start: 20070701, end: 20070701
  2. BONIVA (IBANDRONATE SODIUM) [Concomitant]
  3. MULTIVITAMIN [Concomitant]

REACTIONS (3)
  - DIZZINESS [None]
  - FEELING ABNORMAL [None]
  - INITIAL INSOMNIA [None]
